FAERS Safety Report 6140966-5 (Version None)
Quarter: 2009Q2

REPORT INFORMATION
  Report Type: 
  Country: None (occurrence: None)
  Receive Date: 20090402
  Receipt Date: 20090323
  Transmission Date: 20091009
  Serious: Yes (Hospitalization)
  Sender: FDA-Public Use
  Company Number: TW-PFIZER INC-2009188220

PATIENT

DRUGS (7)
  1. ATORVASTATIN CALCIUM [Suspect]
     Indication: HYPERCHOLESTEROLAEMIA
     Route: 048
     Dates: start: 20090205, end: 20090305
  2. BOKEY [Suspect]
     Dosage: 100 MG, 1X/DAY
     Dates: start: 20090205, end: 20090305
  3. BOKEY [Suspect]
     Dosage: 100 MG, 1X/DAY
     Route: 048
     Dates: start: 20050401, end: 20051201
  4. PLAVIX [Concomitant]
     Dosage: UNK
     Route: 048
     Dates: start: 20080214, end: 20090205
  5. PLAVIX [Concomitant]
     Dosage: UNK
     Dates: start: 20090305
  6. COZAAR [Concomitant]
     Dosage: UNK
     Route: 048
     Dates: start: 20080228
  7. REPAGLINIDE [Concomitant]
     Route: 048
     Dates: start: 20080102, end: 20090309

REACTIONS (2)
  - HYPERSENSITIVITY [None]
  - URINARY TRACT INFECTION [None]
